FAERS Safety Report 12347232 (Version 1)
Quarter: 2016Q2

REPORT INFORMATION
  Report Type: Spontaneous
  Country: US (occurrence: None)
  Receive Date: 20160506
  Receipt Date: 20160506
  Transmission Date: 20160815
  Serious: Yes (Other)
  Sender: FDA-Public Use
  Company Number: None

PATIENT
  Age: 52 Year
  Sex: Female
  Weight: 54.7 kg

DRUGS (1)
  1. METOCLOPRAMIDE 10MG TEVA [Suspect]
     Active Substance: METOCLOPRAMIDE
     Indication: GASTROINTESTINAL MOTILITY DISORDER
     Dosage: 10MG TID G-TUBE
     Dates: start: 20160118, end: 20160125

REACTIONS (1)
  - Akathisia [None]

NARRATIVE: CASE EVENT DATE: 20160125
